FAERS Safety Report 7291446-5 (Version None)
Quarter: 2011Q1

REPORT INFORMATION
  Report Type: 
  Country: None (occurrence: None)
  Receive Date: 20110214
  Receipt Date: 20110208
  Transmission Date: 20110831
  Serious: Yes (Death, Hospitalization)
  Sender: FDA-Public Use
  Company Number: AT-CELGENEUS-009-C5013-08031100

PATIENT
  Sex: Male
  Weight: 82 kg

DRUGS (7)
  1. PLACEBO FOR CC-5013 [Suspect]
     Indication: MULTIPLE MYELOMA
     Route: 048
  2. MELPHALAN [Suspect]
     Indication: MULTIPLE MYELOMA
     Route: 065
     Dates: start: 20070903, end: 20080318
  3. NEUPOGEN [Concomitant]
     Indication: NEUTROPENIA
     Route: 058
     Dates: start: 20080404
  4. CC-5013 [Suspect]
     Indication: MULTIPLE MYELOMA
     Route: 048
     Dates: start: 20070903, end: 20080317
  5. PREDNISONE [Suspect]
     Indication: MULTIPLE MYELOMA
     Route: 065
     Dates: start: 20070903, end: 20080318
  6. NEUPOGEN [Concomitant]
     Route: 058
     Dates: start: 20070801
  7. ERYTHROPOETIN [Concomitant]
     Route: 065
     Dates: start: 20071203

REACTIONS (6)
  - THROMBOCYTOPENIA [None]
  - BACK PAIN [None]
  - NEUTROPENIA [None]
  - ACUTE MYELOID LEUKAEMIA [None]
  - BONE PAIN [None]
  - ANAEMIA [None]
